FAERS Safety Report 25682391 (Version 1)
Quarter: 2025Q3

REPORT INFORMATION
  Report Type: Spontaneous
  Country: US (occurrence: US)
  Receive Date: 20250814
  Receipt Date: 20250814
  Transmission Date: 20251021
  Serious: No
  Sender: DR REDDYS
  Company Number: None

PATIENT
  Age: 77 Year
  Sex: Female

DRUGS (6)
  1. LEVOTHYROXINE [Suspect]
     Active Substance: LEVOTHYROXINE
     Indication: Product used for unknown indication
     Dates: start: 202308, end: 202309
  2. MAGNESIUM STEARATE [Suspect]
     Active Substance: MAGNESIUM STEARATE
     Indication: Product used for unknown indication
     Dates: start: 202308, end: 202309
  3. POVIDONE [Suspect]
     Active Substance: POVIDONE
     Indication: Product used for unknown indication
     Dates: start: 202308, end: 202309
  4. AMLODIPINE [Concomitant]
     Active Substance: AMLODIPINE BESYLATE
     Indication: Product used for unknown indication
  5. SIMVASTATIN [Concomitant]
     Active Substance: SIMVASTATIN
     Indication: Product used for unknown indication
  6. CALCIUM D SUPPLEMENT [Concomitant]
     Indication: Vitamin supplementation

REACTIONS (2)
  - Eyelid oedema [Recovered/Resolved]
  - Type IV hypersensitivity reaction [Recovered/Resolved]

NARRATIVE: CASE EVENT DATE: 20230901
